FAERS Safety Report 12239366 (Version 3)
Quarter: 2016Q3

REPORT INFORMATION
  Report Type: Report from Study
  Country: US (occurrence: US)
  Receive Date: 20160405
  Receipt Date: 20160711
  Transmission Date: 20161109
  Serious: Yes (Death, Hospitalization, Other)
  Sender: FDA-Public Use
  Company Number: US-TAKEDA-2016MPI002339

PATIENT
  Age: 33 Year
  Sex: Male

DRUGS (1)
  1. VELCADE [Suspect]
     Active Substance: BORTEZOMIB
     Indication: PLASMA CELL MYELOMA
     Dosage: 1.3 MG/M2, 1/WEEK
     Route: 058
     Dates: start: 20151017, end: 20160401

REACTIONS (3)
  - Therapy change [Unknown]
  - Plasma cell myeloma [Fatal]
  - Pancytopenia [Fatal]

NARRATIVE: CASE EVENT DATE: 20160215
